FAERS Safety Report 16090601 (Version 1)
Quarter: 2019Q1

REPORT INFORMATION
  Report Type: Spontaneous
  Country: US (occurrence: US)
  Receive Date: 20190319
  Receipt Date: 20190319
  Transmission Date: 20190418
  Serious: No
  Sender: FDA-Public Use
  Company Number: US-PERRIGO-19US001229

PATIENT
  Age: 34 Year
  Sex: Female

DRUGS (1)
  1. LORATADINE AND PSEUDOEPHEDRINE SULFATE [Suspect]
     Active Substance: LORATADINE\PSEUDOEPHEDRINE SULFATE
     Indication: SINUSITIS
     Dosage: 1/4 TABLET, UNK
     Route: 048
     Dates: start: 201901

REACTIONS (4)
  - Incorrect dose administered [Unknown]
  - Wrong technique in product usage process [Unknown]
  - Heart rate increased [Unknown]
  - Off label use [Unknown]

NARRATIVE: CASE EVENT DATE: 201901
